FAERS Safety Report 18322132 (Version 1)
Quarter: 2020Q3

REPORT INFORMATION
  Report Type: Spontaneous
  Country: US (occurrence: US)
  Receive Date: 20200928
  Receipt Date: 20200928
  Transmission Date: 20201103
  Serious: Yes (Hospitalization)
  Sender: FDA-Public Use
  Company Number: None

PATIENT

DRUGS (3)
  1. METHOTREX 50MG/2ML SDV W/PRES [Suspect]
     Active Substance: METHOTREXATE
     Indication: RHEUMATOID ARTHRITIS
     Route: 058
     Dates: start: 20180208
  2. XELJANZ [Suspect]
     Active Substance: TOFACITINIB CITRATE
  3. PROLIA [Suspect]
     Active Substance: DENOSUMAB

REACTIONS (1)
  - Spinal operation [None]
